FAERS Safety Report 26178772 (Version 1)
Quarter: 2025Q4

REPORT INFORMATION
  Report Type: Spontaneous
  Country: EU (occurrence: None)
  Receive Date: 20251219
  Receipt Date: 20251219
  Transmission Date: 20260117
  Serious: Yes (Hospitalization)
  Sender: UCB
  Company Number: EU-UCBSA-2025080344

PATIENT
  Age: 33 Year

DRUGS (1)
  1. CIMZIA [Suspect]
     Active Substance: CERTOLIZUMAB PEGOL
     Indication: Axial spondyloarthritis
     Dosage: UNK

REACTIONS (5)
  - Abdominal tenderness [Unknown]
  - Blood pressure difference of extremities [Unknown]
  - Cardiac murmur [Unknown]
  - Carotidynia [Unknown]
  - Tenderness [Unknown]
